FAERS Safety Report 16167551 (Version 1)
Quarter: 2019Q2

REPORT INFORMATION
  Report Type: Spontaneous
  Country: GB (occurrence: GB)
  Receive Date: 20190408
  Receipt Date: 20190408
  Transmission Date: 20190711
  Serious: Yes (Hospitalization)
  Sender: FDA-Public Use
  Company Number: GB-SA-2019SA095325

PATIENT
  Age: 66 Year
  Sex: Female
  Weight: 86 kg

DRUGS (6)
  1. LOSARTAN. [Concomitant]
     Active Substance: LOSARTAN
     Indication: HYPERTENSION
  2. WARFARIN SODIUM. [Concomitant]
     Active Substance: WARFARIN SODIUM
  3. MEBEVERINE [Concomitant]
     Active Substance: MEBEVERINE
  4. OMEPRAZOLE. [Concomitant]
     Active Substance: OMEPRAZOLE
  5. PRALUENT [Suspect]
     Active Substance: ALIROCUMAB
     Indication: HYPERCHOLESTEROLAEMIA
     Dosage: 75 MG
     Route: 051
     Dates: start: 20190209, end: 20190209
  6. ROSUVASTATIN. [Concomitant]
     Active Substance: ROSUVASTATIN

REACTIONS (7)
  - Headache [Not Recovered/Not Resolved]
  - Blood electrolytes decreased [Unknown]
  - Disturbance in attention [Not Recovered/Not Resolved]
  - Paraesthesia [Not Recovered/Not Resolved]
  - Lethargy [Unknown]
  - Dizziness [Not Recovered/Not Resolved]
  - Decreased appetite [Unknown]

NARRATIVE: CASE EVENT DATE: 20190209
